FAERS Safety Report 9540214 (Version 4)
Quarter: 2013Q4

REPORT INFORMATION
  Report Type: Report from Study
  Country: BR (occurrence: BR)
  Receive Date: 20130920
  Receipt Date: 20131127
  Transmission Date: 20140711
  Serious: Yes (Death, Life-Threatening, Hospitalization, Other)
  Sender: FDA-Public Use
  Company Number: PHHY2013BR103954

PATIENT
  Sex: Female
  Weight: 66 kg

DRUGS (14)
  1. XOLAIR [Suspect]
     Indication: ASTHMA
     Dosage: 2 DF, QMO
  2. XOLAIR [Suspect]
     Dosage: 150 UG
     Route: 042
  3. SIMVASTATIN [Suspect]
     Dosage: UNK
  4. SIMVASTATIN [Suspect]
     Dosage: UNK
     Dates: start: 201304
  5. SIMVASTATIN [Suspect]
     Dosage: (40)1 DF, AT NIGHT
  6. ALENIA                             /01538101/ [Concomitant]
     Dosage: UNK UKN, UNK
  7. SYMBICORT [Concomitant]
     Dosage: UNK UKN, BID
  8. AEROLIN [Concomitant]
     Dosage: UNK UKN, UNK
  9. FUROSEMIDE [Concomitant]
     Dosage: 1 DF, BID (IN THE MORNING AND IN THE AFTERNOON)
  10. OMEPRAZOLE [Concomitant]
     Dosage: UNK UKN, UNK
  11. CAPTOPRIL [Concomitant]
     Dosage: 2 DF, BID (AT NIGHT AD IN THE MORNING)
  12. AMITRIPTYLINE [Concomitant]
     Dosage: UNK UKN, UNK
  13. SPIRONOLACTONE [Concomitant]
     Dosage: UNK UKN, UNK
  14. BUDESONIDE [Concomitant]
     Indication: ASTHMA
     Dosage: 2 DF, DAILY (TREATMENT STARTED APPROXIMATELY 4 YERAS AGO)
     Route: 048

REACTIONS (16)
  - Paraplegia [Fatal]
  - Feeling abnormal [Unknown]
  - Asthmatic crisis [Recovering/Resolving]
  - Aphasia [Recovered/Resolved]
  - Aphagia [Unknown]
  - Blood cholesterol increased [Unknown]
  - Weight increased [Recovered/Resolved]
  - Dyspnoea [Recovered/Resolved]
  - Asthenia [Recovered/Resolved]
  - Gait disturbance [Unknown]
  - Weight decreased [Unknown]
  - Incorrect route of drug administration [Unknown]
  - Abasia [Unknown]
  - Swelling [Unknown]
  - Abdominal pain upper [Unknown]
  - Fatigue [Recovered/Resolved]
